FAERS Safety Report 6316633-1 (Version None)
Quarter: 2009Q3

REPORT INFORMATION
  Report Type: 
  Country: None (occurrence: None)
  Receive Date: 20090820
  Receipt Date: 20090810
  Transmission Date: 20100115
  Serious: Yes (Other)
  Sender: FDA-Public Use
  Company Number: US-BAXTER-2009BH012601

PATIENT
  Age: 12 Year
  Sex: Female

DRUGS (8)
  1. GAMMAGARD S/D [Suspect]
     Indication: IMMUNODEFICIENCY COMMON VARIABLE
     Route: 042
     Dates: start: 20080101
  2. IMMUNE GLOBULIN INTRAVENOUS (HUMAN) [Suspect]
     Indication: IMMUNODEFICIENCY COMMON VARIABLE
     Route: 042
     Dates: start: 20081105, end: 20081101
  3. ALBUTEROL [Concomitant]
  4. SINGULAIR [Concomitant]
     Dates: start: 20081207
  5. CLARINEX /USA/ [Concomitant]
     Dates: start: 20081207
  6. NASONEX [Concomitant]
     Dates: start: 20081207
  7. MULTIPLE VITAMINS [Concomitant]
     Dates: start: 20081207
  8. IBUPROFEN [Concomitant]

REACTIONS (2)
  - MENINGITIS ASEPTIC [None]
  - VOMITING [None]
